FAERS Safety Report 24057887 (Version 1)
Quarter: 2024Q3

REPORT INFORMATION
  Report Type: Spontaneous
  Country: US (occurrence: US)
  Receive Date: 20240707
  Receipt Date: 20240707
  Transmission Date: 20241017
  Serious: Yes (Disabling)
  Sender: DR REDDYS
  Company Number: None

PATIENT
  Age: 44 Year
  Sex: Male

DRUGS (1)
  1. DOXYCYCLINE [Suspect]
     Active Substance: DOXYCYCLINE\DOXYCYCLINE HYCLATE
     Indication: Q fever

REACTIONS (2)
  - Deafness [Unknown]
  - Tinnitus [Unknown]
